FAERS Safety Report 25254804 (Version 1)
Quarter: 2025Q2

REPORT INFORMATION
  Report Type: Spontaneous
  Country: US (occurrence: None)
  Receive Date: 20250430
  Receipt Date: 20250430
  Transmission Date: 20250716
  Serious: Yes (Hospitalization)
  Sender: FDA-CTU
  Company Number: None

PATIENT
  Age: 49 Year
  Sex: Male
  Weight: 67 kg

DRUGS (5)
  1. CISPLATIN [Suspect]
     Active Substance: CISPLATIN
  2. FILGRASTIM [Suspect]
     Active Substance: FILGRASTIM
     Dates: end: 20191226
  3. IFOSFAMIDE [Suspect]
     Active Substance: IFOSFAMIDE
     Dates: end: 20191213
  4. TAXOL [Suspect]
     Active Substance: PACLITAXEL
     Dates: end: 20191210
  5. NEULASTA [Suspect]
     Active Substance: PEGFILGRASTIM
     Dates: end: 20191214

REACTIONS (5)
  - Congenital aplasia [None]
  - Oesophagitis [None]
  - Asthenia [None]
  - Genital herpes [None]
  - Dysphagia [None]

NARRATIVE: CASE EVENT DATE: 20191217
